FAERS Safety Report 10185102 (Version 1)
Quarter: 2014Q2

REPORT INFORMATION
  Report Type: Spontaneous
  Country: US (occurrence: None)
  Receive Date: 20140519
  Receipt Date: 20140519
  Transmission Date: 20141212
  Serious: Yes (Hospitalization)
  Sender: FDA-Public Use
  Company Number: AUR-APL-2014-05702

PATIENT
  Age: 16 Year
  Sex: Female

DRUGS (2)
  1. OLANZAPINE [Suspect]
     Indication: MANIA
     Dosage: TITRATED UPWARD TO 20 MG, DAILY, UNKNOWN?
  2. VALPROIC ACID (VALPROIC ACID) [Concomitant]

REACTIONS (11)
  - Irritability [None]
  - Mania [None]
  - Psychomotor hyperactivity [None]
  - Aggression [None]
  - Sleep disorder [None]
  - Agitation [None]
  - Aggression [None]
  - Muscle rigidity [None]
  - Akathisia [None]
  - Hyperprolactinaemia [None]
  - Insomnia [None]
